FAERS Safety Report 8533604-5 (Version None)
Quarter: 2012Q3

REPORT INFORMATION
  Report Type: 
  Country: None (occurrence: None)
  Receive Date: 20120717
  Receipt Date: 20120717
  Transmission Date: 20120928
  Serious: Yes (Other)
  Sender: FDA-Public Use
  Company Number: None

PATIENT
  Age: 37 Year
  Sex: Male
  Weight: 68.0396 kg

DRUGS (2)
  1. CIPRO [Suspect]
     Indication: SYNOVIAL CYST
     Dosage: 500 MG TWICE DAILY PO
     Route: 048
     Dates: start: 20100210, end: 20100215
  2. CIPRO [Suspect]
     Indication: INFECTION PROPHYLAXIS
     Dosage: 500 MG TWICE DAILY PO
     Route: 048
     Dates: start: 20100210, end: 20100215

REACTIONS (6)
  - ARTHRALGIA [None]
  - MUSCULOSKELETAL PAIN [None]
  - ARTHROPATHY [None]
  - CHONDROPATHY [None]
  - TENDONITIS [None]
  - TENDON RUPTURE [None]
